FAERS Safety Report 5692519-0 (Version None)
Quarter: 2008Q2

REPORT INFORMATION
  Report Type: 
  Country: None (occurrence: None)
  Receive Date: 20080402
  Receipt Date: 20080325
  Transmission Date: 20081010
  Serious: Yes (Hospitalization)
  Sender: FDA-Public Use
  Company Number: US-GENENTECH-258301

PATIENT
  Sex: Female
  Weight: 63.492 kg

DRUGS (10)
  1. BEVACIZUMAB [Suspect]
     Indication: COLORECTAL CANCER
     Dosage: 5 MG/KG, Q2W
     Route: 042
     Dates: start: 20070924
  2. LEUCOVORIN CALCIUM [Concomitant]
     Indication: COLORECTAL CANCER
     Dosage: 1400 MG/M2, Q2W
     Route: 065
     Dates: start: 20070924
  3. FLUOROURACIL [Concomitant]
     Indication: COLORECTAL CANCER
     Dosage: 1400 MG/M2, UNK
     Route: 040
     Dates: start: 20070924
  4. FLUOROURACIL [Concomitant]
     Dosage: 2400 MG/M2, UNKNOWN
     Route: 042
     Dates: start: 20070924
  5. OXALIPLATIN [Concomitant]
     Indication: COLORECTAL CANCER
     Dosage: 85 MG/M2, Q2W
     Route: 042
     Dates: start: 20070924
  6. PHENERGAN HCL [Concomitant]
     Indication: NAUSEA
     Dosage: 25 MG, PRN
     Route: 048
  7. PHENERGAN HCL [Concomitant]
     Indication: VOMITING
  8. ALOXI [Concomitant]
     Indication: NAUSEA
     Dosage: 0.25 MG, UNK
     Route: 042
  9. ALOXI [Concomitant]
     Indication: VOMITING
  10. DECADRON [Concomitant]
     Indication: PREMEDICATION
     Dosage: 10 MG, UNK
     Route: 042

REACTIONS (1)
  - ASCITES [None]
